FAERS Safety Report 6716342-0 (Version None)
Quarter: 2010Q2

REPORT INFORMATION
  Report Type: 
  Country: None (occurrence: None)
  Receive Date: 20100506
  Receipt Date: 20100506
  Transmission Date: 20101027
  Serious: Yes (Death, Hospitalization)
  Sender: FDA-Public Use
  Company Number: None

PATIENT
  Age: 34 Year
  Sex: Male
  Weight: 90.8 kg

DRUGS (8)
  1. RITUXIMAB [Suspect]
     Indication: ACUTE LYMPHOCYTIC LEUKAEMIA
     Dosage: 840MG ONCE IV
     Route: 042
     Dates: start: 20100123
  2. ALLOPURINOL [Concomitant]
  3. HYDROMORPHONE HCL [Concomitant]
  4. LANSOPRAZOLE [Concomitant]
  5. LOPERAMIDE [Concomitant]
  6. POTASSIUM CHLORIDE [Concomitant]
  7. LORAZEPAM [Concomitant]
  8. DIPHENHYDRAMINE [Concomitant]

REACTIONS (6)
  - CHILLS [None]
  - FEBRILE NEUTROPENIA [None]
  - HYPOTENSION [None]
  - HYPOXIA [None]
  - MULTI-ORGAN FAILURE [None]
  - SEPTIC SHOCK [None]
